FAERS Safety Report 25964484 (Version 2)
Quarter: 2025Q4

REPORT INFORMATION
  Report Type: Spontaneous
  Country: US (occurrence: US)
  Receive Date: 20251027
  Receipt Date: 20251107
  Transmission Date: 20260117
  Serious: No
  Sender: NOVARTIS
  Company Number: US-002147023-NVSC2025US161986

PATIENT

DRUGS (1)
  1. LEQVIO [Suspect]
     Active Substance: INCLISIRAN SODIUM
     Indication: Low density lipoprotein decreased
     Dosage: 284 MILLIGRAM PER 1.5 MILLILITRE, ONCE/SINGLE
     Route: 065

REACTIONS (3)
  - Injection site mass [Unknown]
  - Needle issue [Unknown]
  - Therapeutic response decreased [Unknown]
